FAERS Safety Report 16116240 (Version 1)
Quarter: 2019Q1

REPORT INFORMATION
  Report Type: Spontaneous
  Country: RO (occurrence: RO)
  Receive Date: 20190326
  Receipt Date: 20190326
  Transmission Date: 20190418
  Serious: Yes (Other)
  Sender: FDA-Public Use
  Company Number: RO-AUROBINDO-AUR-APL-2019-015291

PATIENT

DRUGS (4)
  1. RIBAVIRIN FILM COATED TABLETS [Suspect]
     Active Substance: RIBAVIRIN
     Indication: HEPATIC CIRRHOSIS
     Dosage: 2-0-1 TABLETS/DAY
     Route: 048
     Dates: start: 20181130
  2. LEDIPASVIR;SOFOSBUVIR [Suspect]
     Active Substance: LEDIPASVIR\SOFOSBUVIR
     Indication: HEPATIC CIRRHOSIS
  3. LEDIPASVIR;SOFOSBUVIR [Suspect]
     Active Substance: LEDIPASVIR\SOFOSBUVIR
     Indication: HEPATITIS C
     Dosage: 1 DOSAGE FORM, ONCE A DAY (1 DF, QD)
     Route: 048
     Dates: start: 20181130
  4. RIBAVIRIN FILM COATED TABLETS [Suspect]
     Active Substance: RIBAVIRIN
     Indication: HEPATITIS C

REACTIONS (3)
  - Platelet count decreased [Not Recovered/Not Resolved]
  - Back pain [Not Recovered/Not Resolved]
  - Arthralgia [Not Recovered/Not Resolved]

NARRATIVE: CASE EVENT DATE: 20190223
